FAERS Safety Report 10297058 (Version 1)
Quarter: 2014Q3

REPORT INFORMATION
  Report Type: Spontaneous
  Country: US (occurrence: None)
  Receive Date: 20140708
  Receipt Date: 20140708
  Transmission Date: 20150326
  Serious: Yes (Hospitalization)
  Sender: FDA-Public Use
  Company Number: None

PATIENT
  Age: 77 Year
  Sex: Male

DRUGS (1)
  1. PREDNISONE. [Suspect]
     Active Substance: PREDNISONE
     Indication: METASTASES TO BONE
     Route: 048
     Dates: start: 20140429, end: 20140618

REACTIONS (4)
  - Anaemia [None]
  - Tachycardia [None]
  - Gastric haemorrhage [None]
  - Renal failure acute [None]

NARRATIVE: CASE EVENT DATE: 20140613
